FAERS Safety Report 12267648 (Version 5)
Quarter: 2016Q4

REPORT INFORMATION
  Report Type: Report from Study
  Country: US (occurrence: US)
  Receive Date: 20160414
  Receipt Date: 20161021
  Transmission Date: 20170207
  Serious: Yes (Hospitalization, Other)
  Sender: FDA-Public Use
  Company Number: US-BAYER-2015-404347

PATIENT
  Age: 72 Year
  Sex: Female

DRUGS (10)
  1. NEXAVAR [Suspect]
     Active Substance: SORAFENIB
     Indication: HEPATIC CANCER
     Dosage: 400 MG, BID
     Route: 048
  2. ONDANSETRON [Concomitant]
     Active Substance: ONDANSETRON
  3. TRAMADOL. [Concomitant]
     Active Substance: TRAMADOL
  4. NEXAVAR [Suspect]
     Active Substance: SORAFENIB
     Indication: HEPATIC CANCER
     Dosage: 800 MG DAILY DOSE
     Route: 048
     Dates: start: 20150819
  5. PROPRANOLOL [Concomitant]
     Active Substance: PROPRANOLOL\PROPRANOLOL HYDROCHLORIDE
  6. NEXAVAR [Suspect]
     Active Substance: SORAFENIB
     Indication: HEPATIC CANCER
     Dosage: 400 MG, BID
     Route: 048
  7. NEXAVAR [Suspect]
     Active Substance: SORAFENIB
     Indication: HEPATIC CANCER
     Dosage: 800 MG DAILY DOSE
     Route: 048
  8. SPIRONOLACTONE. [Concomitant]
     Active Substance: SPIRONOLACTONE
  9. NEXAVAR [Suspect]
     Active Substance: SORAFENIB
     Indication: HEPATIC CANCER
     Dosage: 800 MG DAILY DOSE
     Route: 048
  10. NEXAVAR [Suspect]
     Active Substance: SORAFENIB
     Indication: HEPATIC CANCER
     Dosage: 400 MG, BID
     Route: 048

REACTIONS (18)
  - Anaemia [None]
  - Nausea [None]
  - Diarrhoea [Recovering/Resolving]
  - Gait disturbance [Recovering/Resolving]
  - Fall [None]
  - Plantar erythema [Recovering/Resolving]
  - Anaemia [None]
  - Platelet count decreased [None]
  - Diarrhoea [Not Recovered/Not Resolved]
  - Drug dose omission [None]
  - Anaemia [None]
  - Vomiting [None]
  - Colostomy [None]
  - Drug dose omission [None]
  - Dyspepsia [None]
  - Dizziness [Recovering/Resolving]
  - Nausea [None]
  - Drug dose omission [None]

NARRATIVE: CASE EVENT DATE: 201512
